FAERS Safety Report 21969406 (Version 1)
Quarter: 2023Q1

REPORT INFORMATION
  Report Type: Spontaneous
  Country: GB (occurrence: GB)
  Receive Date: 20230208
  Receipt Date: 20230208
  Transmission Date: 20230418
  Serious: Yes (Hospitalization, Other)
  Sender: FDA-Public Use
  Company Number: None

PATIENT
  Age: 26 Year
  Sex: Female

DRUGS (15)
  1. TOPIRAMATE [Suspect]
     Active Substance: TOPIRAMATE
     Indication: Affective disorder
     Route: 048
     Dates: start: 201903
  2. TOPIRAMATE [Suspect]
     Active Substance: TOPIRAMATE
     Dosage: 25 MG, BID
     Route: 048
     Dates: start: 201603
  3. TOPIRAMATE [Suspect]
     Active Substance: TOPIRAMATE
     Dosage: 50 MILLIGRAM, QD, (50 MG, QD)
     Route: 048
     Dates: start: 201903
  4. TOPIRAMATE [Suspect]
     Active Substance: TOPIRAMATE
     Dosage: 50 MG, BID
     Route: 048
     Dates: start: 201903
  5. ARIPIPRAZOLE [Suspect]
     Active Substance: ARIPIPRAZOLE
     Indication: Schizophrenia
     Dosage: UNK
     Route: 065
     Dates: start: 201903
  6. ARIPIPRAZOLE [Suspect]
     Active Substance: ARIPIPRAZOLE
     Indication: Affective disorder
  7. CLOZARIL [Suspect]
     Active Substance: CLOZAPINE
     Indication: Schizophrenia
     Dosage: 300 MG, QD (100 MG AM AND 200 MG PM)
     Route: 048
     Dates: start: 20160606
  8. CLOZARIL [Suspect]
     Active Substance: CLOZAPINE
     Indication: Depression
     Dosage: UNK
     Route: 048
     Dates: start: 20181128
  9. CLOZARIL [Suspect]
     Active Substance: CLOZAPINE
     Dosage: 550 MG,
     Route: 048
     Dates: start: 201903
  10. CLOZARIL [Suspect]
     Active Substance: CLOZAPINE
     Route: 048
     Dates: start: 201903
  11. VENLAFAXINE HYDROCHLORIDE [Suspect]
     Active Substance: VENLAFAXINE HYDROCHLORIDE
     Indication: Product used for unknown indication
     Route: 065
     Dates: start: 201903
  12. VENLAFAXINE HYDROCHLORIDE [Suspect]
     Active Substance: VENLAFAXINE HYDROCHLORIDE
     Route: 065
     Dates: end: 201903
  13. MIRTAZAPINE [Suspect]
     Active Substance: MIRTAZAPINE
     Indication: Depression
     Dosage: 45 MG, UNK
     Route: 048
     Dates: start: 201903, end: 20220208
  14. MIRTAZAPINE [Suspect]
     Active Substance: MIRTAZAPINE
     Dosage: 45 MG, UNK
     Route: 048
  15. PREGABALIN [Concomitant]
     Active Substance: PREGABALIN
     Indication: Anxiolytic therapy
     Dosage: 75 MG, UNK
     Route: 048

REACTIONS (6)
  - Overdose [Unknown]
  - Pyrexia [Recovered/Resolved]
  - Hospitalisation [Unknown]
  - Infection [Unknown]
  - Off label use [Unknown]
  - Product use in unapproved indication [Unknown]

NARRATIVE: CASE EVENT DATE: 20161010
